FAERS Safety Report 11064448 (Version 2)
Quarter: 2015Q3

REPORT INFORMATION
  Report Type: Spontaneous
  Country: US (occurrence: US)
  Receive Date: 20150424
  Receipt Date: 20150708
  Transmission Date: 20151125
  Serious: Yes (Hospitalization, Other)
  Sender: FDA-Public Use
  Company Number: US-ELI_LILLY_AND_COMPANY-US201504005323

PATIENT
  Age: 73 Year
  Sex: Female
  Weight: 53.5 kg

DRUGS (11)
  1. ATIVAN [Concomitant]
     Active Substance: LORAZEPAM
  2. HALDOL [Concomitant]
     Active Substance: HALOPERIDOL
  3. PREDNISONE. [Concomitant]
     Active Substance: PREDNISONE
  4. VITAMIN B12 [Concomitant]
     Active Substance: CYANOCOBALAMIN
     Dosage: 1000 UG, MONTHLY (1/M)
     Dates: start: 20150219
  5. ALIMTA [Suspect]
     Active Substance: PEMETREXED DISODIUM
     Indication: OVARIAN CANCER
     Dosage: 800 MG, CYCLICAL
     Route: 042
     Dates: start: 20150227, end: 20150327
  6. PRILOSEC [Concomitant]
     Active Substance: OMEPRAZOLE MAGNESIUM
  7. MORPHINE [Concomitant]
     Active Substance: MORPHINE
  8. INDERAL [Concomitant]
     Active Substance: PROPRANOLOL HYDROCHLORIDE
  9. ZOFRAN [Concomitant]
     Active Substance: ONDANSETRON HYDROCHLORIDE
  10. FOLIC ACID. [Concomitant]
     Active Substance: FOLIC ACID
     Dosage: 1 MG, QD
     Dates: start: 20150302
  11. DECADRON [Concomitant]
     Active Substance: DEXAMETHASONE

REACTIONS (19)
  - Emotional distress [Not Recovered/Not Resolved]
  - Nausea [Not Recovered/Not Resolved]
  - Abnormal behaviour [Not Recovered/Not Resolved]
  - Vomiting [Not Recovered/Not Resolved]
  - Agitation [Not Recovered/Not Resolved]
  - Suspiciousness [Not Recovered/Not Resolved]
  - Vitamin B1 decreased [Unknown]
  - Depression [Not Recovered/Not Resolved]
  - Psychotic disorder [Not Recovered/Not Resolved]
  - Personality change [Not Recovered/Not Resolved]
  - Delirium [Not Recovered/Not Resolved]
  - Off label use [Recovered/Resolved]
  - Abdominal pain [Not Recovered/Not Resolved]
  - Malignant neoplasm progression [Not Recovered/Not Resolved]
  - Confusional state [Recovered/Resolved]
  - Headache [Not Recovered/Not Resolved]
  - Anxiety [Not Recovered/Not Resolved]
  - Pyrexia [Not Recovered/Not Resolved]
  - Balance disorder [Not Recovered/Not Resolved]
